FAERS Safety Report 10671154 (Version 3)
Quarter: 2015Q1

REPORT INFORMATION
  Report Type: Spontaneous
  Country: US (occurrence: US)
  Receive Date: 20141223
  Receipt Date: 20150217
  Transmission Date: 20150720
  Serious: No
  Sender: FDA-Public Use
  Company Number: US-009507513-1110USA03467

PATIENT
  Sex: Male
  Weight: 67.57 kg

DRUGS (2)
  1. PROPECIA [Suspect]
     Active Substance: FINASTERIDE
     Indication: ANDROGENETIC ALOPECIA
     Dosage: 1 MG, QD
     Route: 048
     Dates: start: 200103, end: 200608
  2. ZOLOFT [Suspect]
     Active Substance: SERTRALINE HYDROCHLORIDE

REACTIONS (47)
  - Tinnitus [Unknown]
  - Sensory disturbance [Unknown]
  - Hypotension [Unknown]
  - Ejaculation disorder [Unknown]
  - Ejaculation failure [Unknown]
  - Feeling abnormal [Unknown]
  - Tendonitis [Unknown]
  - Anxiety [Not Recovered/Not Resolved]
  - Orgasm abnormal [Unknown]
  - Blepharospasm [Unknown]
  - Irritable bowel syndrome [Unknown]
  - Tendonitis [Unknown]
  - Hyperacusis [Unknown]
  - Haemorrhoids [Unknown]
  - Insomnia [Unknown]
  - Hypogonadism [Unknown]
  - Cognitive disorder [Unknown]
  - Acrochordon [Unknown]
  - Constipation [Unknown]
  - Flatulence [Unknown]
  - Anaemia [Unknown]
  - Myalgia [Unknown]
  - Chronic fatigue syndrome [Not Recovered/Not Resolved]
  - Sexual dysfunction [Unknown]
  - Breast pain [Unknown]
  - Osteopenia [Unknown]
  - Wrong technique in drug usage process [Unknown]
  - Palpitations [Unknown]
  - Rash [Recovered/Resolved]
  - Sleep disorder [Unknown]
  - Tremor [Unknown]
  - Gastrooesophageal reflux disease [Unknown]
  - Arthralgia [Unknown]
  - Gingival graft [Unknown]
  - Melanocytic naevus [Unknown]
  - Libido decreased [Not Recovered/Not Resolved]
  - Erectile dysfunction [Recovering/Resolving]
  - Depression [Not Recovered/Not Resolved]
  - Mole excision [Unknown]
  - Hypogonadism [Recovering/Resolving]
  - Adverse event [Unknown]
  - Skin papilloma [Unknown]
  - Temperature intolerance [Unknown]
  - Abdominal distension [Unknown]
  - Melanocytic naevus [Unknown]
  - Malaise [Unknown]
  - Dyspnoea [Unknown]

NARRATIVE: CASE EVENT DATE: 2001
